FAERS Safety Report 11047285 (Version 1)
Quarter: 2015Q2

REPORT INFORMATION
  Report Type: Spontaneous
  Country: US (occurrence: US)
  Receive Date: 20150420
  Receipt Date: 20150420
  Transmission Date: 20150821
  Serious: Yes (Hospitalization)
  Sender: FDA-Public Use
  Company Number: US-EMD SERONO-8020590

PATIENT
  Age: 30 Year
  Sex: Female

DRUGS (1)
  1. REBIF [Suspect]
     Active Substance: INTERFERON BETA-1A
     Indication: RELAPSING-REMITTING MULTIPLE SCLEROSIS
     Dates: start: 201203

REACTIONS (12)
  - Nervousness [Unknown]
  - Feeling of body temperature change [Unknown]
  - Disturbance in attention [Unknown]
  - Amnesia [Unknown]
  - Depression [Unknown]
  - Fatigue [Unknown]
  - Multiple sclerosis relapse [Unknown]
  - Gait disturbance [Unknown]
  - Anxiety [Unknown]
  - Irritability [Unknown]
  - Asthenia [Unknown]
  - Visual impairment [Unknown]

NARRATIVE: CASE EVENT DATE: 2013
